FAERS Safety Report 16333505 (Version 26)
Quarter: 2020Q1

REPORT INFORMATION
  Report Type: Report from Study
  Country: JP (occurrence: JP)
  Receive Date: 20190520
  Receipt Date: 20200303
  Transmission Date: 20200409
  Serious: Yes (Hospitalization)
  Sender: FDA-Public Use
  Company Number: JP-EISAI MEDICAL RESEARCH-EC-2019-056515

PATIENT
  Age: 72 Year
  Sex: Female
  Weight: 58.4 kg

DRUGS (22)
  1. LENVATINIB [Suspect]
     Active Substance: LENVATINIB
     Route: 048
     Dates: start: 20190724
  2. PEMBROLIZUMAB. [Suspect]
     Active Substance: PEMBROLIZUMAB
     Route: 041
     Dates: start: 20190403, end: 20190403
  3. PEMBROLIZUMAB. [Suspect]
     Active Substance: PEMBROLIZUMAB
     Route: 041
     Dates: start: 20190724
  4. LENVATINIB [Suspect]
     Active Substance: LENVATINIB
     Route: 048
     Dates: start: 20190605, end: 20190610
  5. PEMBROLIZUMAB. [Suspect]
     Active Substance: PEMBROLIZUMAB
     Indication: ENDOMETRIAL CANCER
     Route: 041
     Dates: start: 20190111, end: 20190313
  6. PEMBROLIZUMAB. [Suspect]
     Active Substance: PEMBROLIZUMAB
     Route: 041
     Dates: start: 20190605, end: 20190605
  7. BRONUCK [Concomitant]
     Active Substance: BROMFENAC SODIUM
     Dates: start: 20170509
  8. FLUMETHOLON [Concomitant]
     Active Substance: FLUOROMETHOLONE
     Dates: start: 20160513
  9. LYRICA [Concomitant]
     Active Substance: PREGABALIN
     Dates: start: 20180403, end: 20190515
  10. FML [Concomitant]
     Active Substance: FLUOROMETHOLONE
     Dates: start: 20170120
  11. MAGMITT [Concomitant]
     Active Substance: MAGNESIUM OXIDE
     Dates: start: 20171222, end: 20190515
  12. LENVATINIB [Suspect]
     Active Substance: LENVATINIB
     Indication: ENDOMETRIAL CANCER
     Route: 048
     Dates: start: 20190111, end: 20190410
  13. GOSHA-JINKI-GAN [Concomitant]
     Active Substance: HERBALS
     Dates: start: 20180220, end: 20190515
  14. NEOSTELIN GREEN [Concomitant]
     Active Substance: BENZETHONIUM CHLORIDE
     Dosage: 0.2 PERCENT
     Dates: start: 20190131
  15. LOCOID [Concomitant]
     Active Substance: HYDROCORTISONE BUTYRATE
     Dates: start: 20190125
  16. LOXOPROFEN SODIUM [Concomitant]
     Active Substance: LOXOPROFEN SODIUM
     Dates: start: 20190301, end: 20190515
  17. REBAMIPIDE [Concomitant]
     Active Substance: REBAMIPIDE
     Dates: start: 20190126, end: 20190515
  18. BIO-THREE [Concomitant]
     Active Substance: HERBALS
     Dates: start: 20190126, end: 20190515
  19. OLMESARTAN TOWA [Concomitant]
     Dates: start: 20190325, end: 20190414
  20. TATHION [Concomitant]
     Active Substance: GLUTATHIONE
     Dates: start: 20160513
  21. HIRUDOID [Concomitant]
     Active Substance: GLYCOSAMINOGLYCANS
     Dates: start: 20190125
  22. PEMBROLIZUMAB. [Suspect]
     Active Substance: PEMBROLIZUMAB
     Route: 041
     Dates: start: 20190424, end: 20190424

REACTIONS (3)
  - Decreased appetite [Recovered/Resolved]
  - Cholecystitis [Recovered/Resolved]
  - Adrenocorticotropic hormone deficiency [Recovering/Resolving]

NARRATIVE: CASE EVENT DATE: 20190410
